FAERS Safety Report 13129027 (Version 1)
Quarter: 2017Q1

REPORT INFORMATION
  Report Type: Report from Study
  Country: US (occurrence: US)
  Receive Date: 20170119
  Receipt Date: 20170119
  Transmission Date: 20170428
  Serious: Yes (Hospitalization)
  Sender: FDA-Public Use
  Company Number: US-ROCHE-1879333

PATIENT
  Age: 59 Year
  Sex: Female

DRUGS (2)
  1. ALECENSA [Suspect]
     Active Substance: ALECTINIB HYDROCHLORIDE
     Indication: BRAIN NEOPLASM
     Dosage: 4 PILLS TWICE A DAY ;ONGOING: NO
     Route: 048
     Dates: start: 201611
  2. ALECENSA [Suspect]
     Active Substance: ALECTINIB HYDROCHLORIDE
     Indication: BRONCHIAL CARCINOMA
     Dosage: 2 PILLS TWICE A DAY ;ONGOING: YES
     Route: 048
     Dates: start: 201612

REACTIONS (3)
  - Urinary tract infection [Not Recovered/Not Resolved]
  - Off label use [Unknown]
  - Meningitis [Not Recovered/Not Resolved]

NARRATIVE: CASE EVENT DATE: 20161226
